FAERS Safety Report 5903576-8 (Version None)
Quarter: 2008Q3

REPORT INFORMATION
  Report Type: 
  Country: None (occurrence: None)
  Receive Date: 20080930
  Receipt Date: 20080924
  Transmission Date: 20090109
  Serious: Yes (Other)
  Sender: FDA-Public Use
  Company Number: CA-PFIZER INC-2008064594

PATIENT
  Sex: Female

DRUGS (6)
  1. NORVASC [Suspect]
     Indication: HYPERTENSION
     Route: 048
     Dates: end: 20080101
  2. ACCUPRIL [Concomitant]
     Indication: HYPERTENSION
  3. ACTONEL [Concomitant]
  4. ASPIRIN [Concomitant]
  5. VITALUX [Concomitant]
  6. CALTRATE [Concomitant]

REACTIONS (1)
  - GINGIVAL HYPERPLASIA [None]
